FAERS Safety Report 5569485-1 (Version None)
Quarter: 2007Q4

REPORT INFORMATION
  Report Type: 
  Country: None (occurrence: None)
  Receive Date: 20071220
  Receipt Date: 20071220
  Transmission Date: 20080405
  Serious: Yes (Other)
  Sender: FDA-Public Use
  Company Number: PT-JNJFOC-20071204958

PATIENT
  Sex: Male
  Weight: 20.3 kg

DRUGS (1)
  1. CONCERTA [Suspect]
     Indication: ATTENTION DEFICIT/HYPERACTIVITY DISORDER
     Route: 048
     Dates: start: 20070211, end: 20070211

REACTIONS (4)
  - DYSKINESIA [None]
  - EXCESSIVE EYE BLINKING [None]
  - TIC [None]
  - TRICHOTILLOMANIA [None]
